FAERS Safety Report 6292282-9 (Version None)
Quarter: 2009Q3

REPORT INFORMATION
  Report Type: 
  Country: None (occurrence: None)
  Receive Date: 20090730
  Receipt Date: 20090730
  Transmission Date: 20100115
  Serious: No
  Sender: FDA-Public Use
  Company Number: None

PATIENT
  Sex: Female
  Weight: 70.7611 kg

DRUGS (1)
  1. GABAPENTIN [Suspect]
     Indication: NEURALGIA
     Dosage: 300 MG 2 TABS TID PO
     Route: 048

REACTIONS (2)
  - INADEQUATE ANALGESIA [None]
  - PRODUCT SUBSTITUTION ISSUE [None]
